FAERS Safety Report 22649455 (Version 1)
Quarter: 2023Q2

REPORT INFORMATION
  Report Type: Spontaneous
  Country: DE (occurrence: DE)
  Receive Date: 20230628
  Receipt Date: 20230628
  Transmission Date: 20230722
  Serious: Yes (Hospitalization, Other)
  Sender: FDA-Public Use
  Company Number: DE-002147023-NVSC2023DE135155

PATIENT
  Age: 68 Year
  Sex: Male

DRUGS (5)
  1. MYCOPHENOLATE MOFETIL [Suspect]
     Active Substance: MYCOPHENOLATE MOFETIL
     Indication: Prophylaxis against graft versus host disease
     Route: 065
  2. CYTARABINE [Suspect]
     Active Substance: CYTARABINE
     Indication: Product used for unknown indication
     Route: 065
  3. FLUDARABINE [Suspect]
     Active Substance: FLUDARABINE PHOSPHATE
     Indication: Product used for unknown indication
     Route: 065
  4. TACROLIMUS [Suspect]
     Active Substance: TACROLIMUS
     Indication: Prophylaxis against graft versus host disease
     Route: 065
  5. MELPHALAN [Concomitant]
     Active Substance: MELPHALAN
     Indication: Product used for unknown indication
     Dosage: 100 (MG/QM)

REACTIONS (13)
  - Chronic graft versus host disease oral [Unknown]
  - Blood albumin decreased [Not Recovered/Not Resolved]
  - Proteinuria [Recovered/Resolved]
  - Chronic graft versus host disease in eye [Unknown]
  - Tachycardia [Unknown]
  - Glomerulonephritis membranous [Unknown]
  - Nephrotic syndrome [Recovered/Resolved]
  - Acute graft versus host disease in skin [Recovered/Resolved]
  - Pulmonary embolism [Unknown]
  - Dyspnoea [Unknown]
  - Oedema peripheral [Not Recovered/Not Resolved]
  - Paraproteinaemia [Recovered/Resolved]
  - Hypotension [Unknown]
